FAERS Safety Report 21165199 (Version 1)
Quarter: 2022Q3

REPORT INFORMATION
  Report Type: Spontaneous
  Country: AU (occurrence: AU)
  Receive Date: 20220803
  Receipt Date: 20220803
  Transmission Date: 20221027
  Serious: Yes (Other)
  Sender: FDA-Public Use
  Company Number: AU-MYLANLABS-2022M1078262

PATIENT
  Age: 44 Year
  Sex: Male

DRUGS (13)
  1. CLOZAPINE [Suspect]
     Active Substance: CLOZAPINE
     Indication: Schizophrenia
     Dosage: 600 MILLIGRAM, QD (200 MG MANE AND 400 MG NOCTE)
     Route: 065
     Dates: start: 20061023
  2. CLOZAPINE [Suspect]
     Active Substance: CLOZAPINE
     Dosage: 400 MILLIGRAM, QD (400 MG NOCTE)
     Route: 065
     Dates: start: 20220720
  3. PALIPERIDONE [Concomitant]
     Active Substance: PALIPERIDONE
     Dosage: 100 MILLIGRAM IMI Q 4 WEEKLY
     Route: 065
  4. DIAZEPAM [Concomitant]
     Active Substance: DIAZEPAM
     Dosage: 5 MILLIGRAM NOCTE
     Route: 048
  5. ESCITALOPRAM [Concomitant]
     Active Substance: ESCITALOPRAM OXALATE
     Dosage: 20 MILLIGRAM, AM
     Route: 065
  6. VALPROATE [Concomitant]
     Active Substance: VALPROIC ACID
     Dosage: 1000 MILLIGRAM, BID
     Route: 065
  7. ATROVENT [Concomitant]
     Active Substance: IPRATROPIUM BROMIDE
     Dosage: UNK
     Route: 065
  8. DIABEX [Concomitant]
     Active Substance: METFORMIN HYDROCHLORIDE
     Dosage: UNK
     Route: 065
  9. LEXAPRO [Concomitant]
     Active Substance: ESCITALOPRAM OXALATE
     Dosage: UNK
     Route: 065
  10. JANUVIA [Concomitant]
     Active Substance: SITAGLIPTIN PHOSPHATE
     Dosage: UNK
     Route: 065
  11. SERETIDE [Concomitant]
     Active Substance: FLUTICASONE PROPIONATE\SALMETEROL XINAFOATE
     Dosage: UNK
     Route: 065
  12. SODIUM BICARBONATE [Concomitant]
     Active Substance: SODIUM BICARBONATE
     Dosage: UNK
     Route: 065
  13. VALIUM [Concomitant]
     Active Substance: DIAZEPAM
     Dosage: UNK
     Route: 065

REACTIONS (2)
  - COVID-19 [Recovering/Resolving]
  - Antipsychotic drug level above therapeutic [Recovered/Resolved]

NARRATIVE: CASE EVENT DATE: 20220709
